FAERS Safety Report 26048439 (Version 2)
Quarter: 2025Q4

REPORT INFORMATION
  Report Type: Spontaneous
  Country: US (occurrence: US)
  Receive Date: 20251114
  Receipt Date: 20251127
  Transmission Date: 20260117
  Serious: Yes (Other)
  Sender: Unknown Manufacturer
  Company Number: US-LENZ THERAPEUTICS, INC.-2025LTS000190

PATIENT
  Sex: Female

DRUGS (1)
  1. VIZZ [Suspect]
     Active Substance: ACECLIDINE HYDROCHLORIDE
     Indication: Presbyopia
     Dosage: 0.4 MILLILITER, QD
     Route: 047
     Dates: start: 20251031, end: 20251031

REACTIONS (7)
  - Tunnel vision [Recovered/Resolved]
  - Vitreous floaters [Recovered/Resolved]
  - Drug effect less than expected [Unknown]
  - Drug ineffective [Unknown]
  - Visual impairment [Recovered/Resolved]
  - Headache [Recovered/Resolved]
  - Ocular hyperaemia [Recovered/Resolved]

NARRATIVE: CASE EVENT DATE: 20251030
